FAERS Safety Report 9374579 (Version 1)
Quarter: 2013Q2

REPORT INFORMATION
  Report Type: Spontaneous
  Country: SE (occurrence: SE)
  Receive Date: 20130628
  Receipt Date: 20130628
  Transmission Date: 20140414
  Serious: Yes (Other)
  Sender: FDA-Public Use
  Company Number: SE-ROCHE-1242269

PATIENT
  Sex: Male

DRUGS (1)
  1. XENICAL [Suspect]
     Indication: PRODUCT USED FOR UNKNOWN INDICATION
     Dosage: HARD CAPSULE
     Route: 065

REACTIONS (2)
  - Respiratory disorder [Recovered/Resolved]
  - Palpitations [Recovered/Resolved]
